FAERS Safety Report 8981908 (Version 1)
Quarter: 2012Q4

REPORT INFORMATION
  Report Type: 
  Country: US (occurrence: US)
  Receive Date: 20121212
  Receipt Date: 20121212
  Transmission Date: 20130627
  Serious: Yes (Death, Other)
  Sender: FDA-Public Use
  Company Number: US-ASTELLAS-1127580

PATIENT
  Sex: Male

DRUGS (5)
  1. TARCEVA [Suspect]
     Indication: PANCREATIC CARCINOMA
  2. AVASTIN [Suspect]
     Indication: PANCREATIC CARCINOMA
     Route: 065
     Dates: start: 200411, end: 200503
  3. TAXOTERE [Concomitant]
     Route: 065
     Dates: end: 200503
  4. GEMZAR [Concomitant]
  5. DECADRON [Concomitant]

REACTIONS (2)
  - Death [Fatal]
  - Proctitis [Unknown]
